FAERS Safety Report 5025771-5 (Version None)
Quarter: 2006Q2

REPORT INFORMATION
  Report Type: 
  Country: None (occurrence: None)
  Receive Date: 20060427
  Receipt Date: 20050329
  Transmission Date: 20061013
  Serious: Yes (Other)
  Sender: FDA-Public Use
  Company Number: 2005039167

PATIENT
  Age: 7 Year
  Sex: Female
  Weight: 31.7518 kg

DRUGS (2)
  1. ZITHROMAX [Suspect]
     Indication: ACUTE SINUSITIS
     Dosage: 300 MG (300 MG, 1 IN 1 D), ORAL
     Route: 048
     Dates: start: 20050225, end: 20050227
  2. INSULIN [Concomitant]

REACTIONS (1)
  - HYPERGLYCAEMIA [None]
